FAERS Safety Report 24951426 (Version 3)
Quarter: 2025Q1

REPORT INFORMATION
  Report Type: Spontaneous
  Country: FR (occurrence: FR)
  Receive Date: 20250210
  Receipt Date: 20250319
  Transmission Date: 20250408
  Serious: Yes (Disabling)
  Sender: FERRING
  Company Number: FR-FERRINGPH-2025FE00087

PATIENT

DRUGS (1)
  1. FIRMAGON [Suspect]
     Active Substance: DEGARELIX ACETATE
     Indication: Prostate cancer
     Route: 065
     Dates: start: 2023, end: 20240802

REACTIONS (3)
  - Musculoskeletal pain [Not Recovered/Not Resolved]
  - Fall [Unknown]
  - Balance disorder [Unknown]

NARRATIVE: CASE EVENT DATE: 20240801
